FAERS Safety Report 19848315 (Version 1)
Quarter: 2021Q3

REPORT INFORMATION
  Report Type: Spontaneous
  Country: US (occurrence: US)
  Receive Date: 20210918
  Receipt Date: 20210918
  Transmission Date: 20211014
  Serious: Yes (Life-Threatening, Hospitalization, Other)
  Sender: FDA-Public Use
  Company Number: US-DRREDDYS-SPO/USA/21/0140113

PATIENT
  Age: 77 Year
  Sex: Female

DRUGS (5)
  1. DEXTROSE. [Concomitant]
     Active Substance: DEXTROSE
     Indication: PRODUCT USED FOR UNKNOWN INDICATION
  2. AMIODARONE HYDROCHLORIDE. [Suspect]
     Active Substance: AMIODARONE HYDROCHLORIDE
     Dosage: A SECOND 360 MG AMIODARONE (IV INFUSION) WAS FOLLOWED AT THE RATE OF 0.5 MG/MINUTE
     Route: 042
  3. DEXTROSE. [Concomitant]
     Active Substance: DEXTROSE
  4. AMIODARONE HYDROCHLORIDE. [Suspect]
     Active Substance: AMIODARONE HYDROCHLORIDE
     Dosage: AT THE RATE OF 1 MG/MINUTE FOR SIX HOURS (0.5 MG/MINUTE)
     Route: 042
  5. AMIODARONE HYDROCHLORIDE. [Suspect]
     Active Substance: AMIODARONE HYDROCHLORIDE
     Indication: ATRIAL FIBRILLATION
     Route: 040

REACTIONS (2)
  - Drug-induced liver injury [Recovering/Resolving]
  - Congestive hepatopathy [Recovering/Resolving]
